FAERS Safety Report 24995273 (Version 1)
Quarter: 2025Q1

REPORT INFORMATION
  Report Type: Spontaneous
  Country: ES (occurrence: ES)
  Receive Date: 20250221
  Receipt Date: 20250221
  Transmission Date: 20250408
  Serious: Yes (Hospitalization, Other)
  Sender: PFIZER
  Company Number: None

PATIENT
  Age: 67 Year
  Sex: Female
  Weight: 60 kg

DRUGS (6)
  1. LORAZEPAM [Interacting]
     Active Substance: LORAZEPAM
     Indication: Depression
     Route: 048
     Dates: start: 2015
  2. DIAZEPAM\SULPIRIDE [Interacting]
     Active Substance: DIAZEPAM\SULPIRIDE
     Indication: Depression
     Route: 048
     Dates: start: 2003
  3. DIAZEPAM [Interacting]
     Active Substance: DIAZEPAM
     Indication: Depression
     Route: 048
     Dates: start: 2015
  4. SULPIRIDE [Interacting]
     Active Substance: SULPIRIDE
     Indication: Depression
     Route: 048
     Dates: start: 2025
  5. VENLAFAXINE [Interacting]
     Active Substance: VENLAFAXINE HYDROCHLORIDE
     Indication: Depression
     Route: 048
     Dates: start: 2003
  6. MIRTAZAPINE [Interacting]
     Active Substance: MIRTAZAPINE
     Indication: Depression
     Route: 048
     Dates: start: 2016

REACTIONS (2)
  - Hip fracture [Recovering/Resolving]
  - Drug interaction [Recovering/Resolving]

NARRATIVE: CASE EVENT DATE: 20250128
